FAERS Safety Report 23111497 (Version 2)
Quarter: 2023Q4

REPORT INFORMATION
  Report Type: Spontaneous
  Country: US (occurrence: US)
  Receive Date: 20231026
  Receipt Date: 20231108
  Transmission Date: 20240110
  Serious: Yes (Hospitalization)
  Sender: FDA-Public Use
  Company Number: US-TEVA-2023-US-2938859

PATIENT
  Age: 84 Year
  Sex: Female

DRUGS (4)
  1. ANAGRELIDE [Suspect]
     Active Substance: ANAGRELIDE
     Indication: Essential thrombocythaemia
     Route: 065
  2. ANAGRELIDE [Suspect]
     Active Substance: ANAGRELIDE
     Dosage: 2 MILLIGRAM DAILY; GRADUALLY INCREASED , 1 MG TWICE A DAY
     Route: 065
  3. CANDESARTAN [Concomitant]
     Active Substance: CANDESARTAN
     Indication: Hypertension
     Dosage: 16 MILLIGRAM DAILY; ONCE A DAY
     Route: 065
  4. WARFARIN [Concomitant]
     Active Substance: WARFARIN
     Indication: Factor V Leiden mutation
     Dosage: 5 MILLIGRAM DAILY; ONCE A DAY
     Route: 065

REACTIONS (2)
  - Pericardial effusion [Recovering/Resolving]
  - Cardiac tamponade [Recovered/Resolved]
